FAERS Safety Report 5019034-1 (Version None)
Quarter: 2006Q2

REPORT INFORMATION
  Report Type: 
  Country: None (occurrence: None)
  Receive Date: 20060531
  Receipt Date: 20060518
  Transmission Date: 20061013
  Serious: Yes (Other)
  Sender: FDA-Public Use
  Company Number: 2005127325

PATIENT
  Age: 11 Year
  Sex: Male
  Weight: 46.2669 kg

DRUGS (10)
  1. ZMAX [Suspect]
     Indication: BRONCHITIS ACUTE
     Dosage: 2 GRAM (2 GRAM, 1 D)
     Dates: start: 20050830, end: 20050830
  2. ZMAX [Suspect]
     Indication: SINUSITIS
     Dosage: 2 GRAM (2 GRAM, 1 D)
     Dates: start: 20050830, end: 20050830
  3. ZMAX [Suspect]
     Indication: UPPER RESPIRATORY TRACT INFECTION
     Dosage: 2 GRAM (2 GRAM, 1 D)
     Dates: start: 20050830, end: 20050830
  4. ADDERALL 10 [Suspect]
     Indication: ATTENTION DEFICIT/HYPERACTIVITY DISORDER
     Dosage: SEE IMAGE
     Route: 048
     Dates: start: 20030501, end: 20041101
  5. ADDERALL 10 [Suspect]
     Indication: ATTENTION DEFICIT/HYPERACTIVITY DISORDER
     Dosage: SEE IMAGE
     Route: 048
     Dates: start: 20050501, end: 20050909
  6. PROVENTIL [Concomitant]
  7. ADVAIR DISKUS 100/50 [Concomitant]
  8. SINGULAIR [Concomitant]
  9. ZYRTEC [Concomitant]
  10. XOPENEX [Concomitant]

REACTIONS (14)
  - ALLERGY TO PLANTS [None]
  - CHILLS [None]
  - DRUG DISPENSING ERROR [None]
  - DRUG INTERACTION [None]
  - DYSARTHRIA [None]
  - DYSKINESIA [None]
  - DYSPHONIA [None]
  - FOOD ALLERGY [None]
  - GASTRIC DISORDER [None]
  - INCORRECT DOSE ADMINISTERED [None]
  - MALAISE [None]
  - RHINITIS [None]
  - TONGUE PARALYSIS [None]
  - UPPER RESPIRATORY TRACT INFECTION [None]
